FAERS Safety Report 7634568-9 (Version None)
Quarter: 2011Q3

REPORT INFORMATION
  Report Type: 
  Country: None (occurrence: None)
  Receive Date: 20110725
  Receipt Date: 20110719
  Transmission Date: 20111222
  Serious: Yes (Disabling)
  Sender: FDA-Public Use
  Company Number: JP-PFIZER INC-2011146084

PATIENT
  Age: 60 Year
  Sex: Male
  Weight: 59 kg

DRUGS (8)
  1. MUCOSTA [Concomitant]
     Dosage: 100 MG, 3X/DAY
     Route: 048
     Dates: start: 20110606, end: 20110610
  2. NEUROTROPIN [Concomitant]
     Indication: NEURALGIA
     Dosage: 8 IU, 3X/DAY
     Route: 048
     Dates: start: 20110610
  3. CELECOXIB [Concomitant]
     Indication: NEURALGIA
     Dosage: 100 MG, 2X/DAY
     Route: 048
     Dates: start: 20110610
  4. PEON [Concomitant]
     Dosage: 80 MG, 3X/DAY
     Route: 048
     Dates: start: 20110606, end: 20110610
  5. METHYCOBAL [Concomitant]
     Dosage: 500 UG, 3X/DAY
     Route: 048
     Dates: start: 20110606, end: 20110610
  6. GASLON [Concomitant]
     Dosage: 2 MG, 2X/DAY
     Route: 048
     Dates: start: 20110610
  7. LYRICA [Suspect]
     Indication: PAIN
     Dosage: 25 MG, 1X/DAY
     Route: 048
     Dates: start: 20110606, end: 20110609
  8. LYRICA [Suspect]
     Dosage: 75 MG, 2X/DAY
     Route: 048
     Dates: start: 20110610, end: 20110620

REACTIONS (1)
  - GLOSSOPTOSIS [None]
